FAERS Safety Report 18258487 (Version 1)
Quarter: 2020Q3

REPORT INFORMATION
  Report Type: Spontaneous
  Country: GB (occurrence: GB)
  Receive Date: 20200911
  Receipt Date: 20200911
  Transmission Date: 20201103
  Serious: Yes (Hospitalization)
  Sender: FDA-Public Use
  Company Number: GB-TEVA-2020-GB-1825148

PATIENT
  Age: 45 Year
  Sex: Female
  Weight: 52 kg

DRUGS (3)
  1. AMANTADINE. [Suspect]
     Active Substance: AMANTADINE HYDROCHLORIDE
     Indication: FATIGUE
     Dosage: TWICE DAILY OR THREE TIMES DAILY ? TAKEN IN THE MORNING., 100MG
     Route: 048
     Dates: end: 20200709
  2. OCRELIZUMAB. [Concomitant]
     Active Substance: OCRELIZUMAB
     Dosage: 2ND INFUSION JANUARY 2020
     Dates: start: 201907
  3. FAMPYRA [Suspect]
     Active Substance: DALFAMPRIDINE
     Indication: GAIT DISTURBANCE
     Dosage: 20MG
     Route: 048
     Dates: start: 20200702, end: 20200709

REACTIONS (7)
  - Delusional perception [Unknown]
  - Sleep disorder [Unknown]
  - Syncope [Unknown]
  - Agitation [Unknown]
  - Paranoia [Unknown]
  - Condition aggravated [Unknown]
  - Psychotic disorder [Recovered/Resolved with Sequelae]

NARRATIVE: CASE EVENT DATE: 20200705
